FAERS Safety Report 8462076-4 (Version None)
Quarter: 2012Q2

REPORT INFORMATION
  Report Type: 
  Country: None (occurrence: None)
  Receive Date: 20120625
  Receipt Date: 20120620
  Transmission Date: 20120825
  Serious: Yes (Other)
  Sender: FDA-Public Use
  Company Number: US-PFIZER INC-2012149128

PATIENT
  Sex: Female
  Weight: 99.773 kg

DRUGS (6)
  1. NORCO [Concomitant]
     Indication: SPINAL COLUMN STENOSIS
     Dosage: 7.5 MG, 4X/DAY
  2. OXYCONTIN [Concomitant]
     Indication: SPINAL COLUMN STENOSIS
     Dosage: 10 MG, 2X/DAY
  3. FLONASE [Concomitant]
     Indication: HYPERSENSITIVITY
     Dosage: UNK, DAILY
     Route: 045
  4. LYRICA [Suspect]
     Dosage: 75 MG, DAILY
     Dates: start: 20120601
  5. LYRICA [Suspect]
     Indication: FIBROMYALGIA
     Dosage: 50 MG, DAILY
     Route: 048
     Dates: start: 20120401
  6. NORCO [Concomitant]
     Indication: OSTEOARTHRITIS

REACTIONS (2)
  - SINUS DISORDER [None]
  - HYSTERECTOMY [None]
